FAERS Safety Report 17396872 (Version 3)
Quarter: 2020Q4

REPORT INFORMATION
  Report Type: Spontaneous
  Country: US (occurrence: US)
  Receive Date: 20200210
  Receipt Date: 20201005
  Transmission Date: 20210113
  Serious: Yes (Other)
  Sender: FDA-Public Use
  Company Number: US-PFIZER INC-2020058395

PATIENT
  Age: 58 Year
  Sex: Male

DRUGS (3)
  1. XELJANZ XR [Suspect]
     Active Substance: TOFACITINIB CITRATE
     Dosage: 11 MG, DAILY
     Route: 048
  2. HEPATITIS B VACCINE [Concomitant]
     Active Substance: HEPATITIS B VIRUS VACCINE
     Indication: IMMUNISATION
     Dosage: UNK
  3. XELJANZ XR [Suspect]
     Active Substance: TOFACITINIB CITRATE
     Indication: RHEUMATOID ARTHRITIS
     Dosage: 11 MG, DAILY
     Route: 048
     Dates: start: 201905

REACTIONS (16)
  - Blood cholesterol increased [Unknown]
  - Insomnia [Unknown]
  - Somnolence [Unknown]
  - Abdominal pain upper [Unknown]
  - Upper respiratory tract infection [Unknown]
  - Hepatic enzyme increased [Unknown]
  - Bronchitis [Unknown]
  - Hiccups [Unknown]
  - Synovial cyst [Unknown]
  - Hepatic fibrosis [Unknown]
  - Condition aggravated [Recovering/Resolving]
  - Dyspepsia [Unknown]
  - Drug ineffective [Unknown]
  - Musculoskeletal stiffness [Unknown]
  - Frustration tolerance decreased [Unknown]
  - Depressed mood [Unknown]

NARRATIVE: CASE EVENT DATE: 2020
